FAERS Safety Report 14413248 (Version 1)
Quarter: 2018Q1

REPORT INFORMATION
  Report Type: Spontaneous
  Country: US (occurrence: US)
  Receive Date: 20180119
  Receipt Date: 20180119
  Transmission Date: 20180509
  Serious: Yes (Hospitalization)
  Sender: FDA-Public Use
  Company Number: None

PATIENT
  Age: 73 Year
  Sex: Female
  Weight: 97.1 kg

DRUGS (11)
  1. VITAMIN D [Concomitant]
     Active Substance: CHOLECALCIFEROL
  2. TRAMADOL. [Concomitant]
     Active Substance: TRAMADOL
  3. WARFARIN [Suspect]
     Active Substance: WARFARIN
     Indication: GENE MUTATION
     Dosage: DATES OF USE - RECENT?FREQUENCY - DAILY WITH PM MEAL
     Route: 048
  4. VITAMIN B [Concomitant]
     Active Substance: VITAMIN B
  5. OMEGA 3 [Concomitant]
     Active Substance: OMEGA-3 FATTY ACIDS
  6. ASPIRIN 81MG [Suspect]
     Active Substance: ASPIRIN
     Indication: THROMBOSIS
     Dosage: DATES OF USE - RECENT
     Route: 058
  7. ASPIRIN 81MG [Suspect]
     Active Substance: ASPIRIN
     Indication: GENE MUTATION
     Dosage: DATES OF USE - RECENT
     Route: 058
  8. ACETYLCYSTEINE. [Concomitant]
     Active Substance: ACETYLCYSTEINE
  9. WARFARIN [Suspect]
     Active Substance: WARFARIN
     Indication: THROMBOSIS
     Dosage: DATES OF USE - RECENT?FREQUENCY - DAILY WITH PM MEAL
     Route: 048
  10. ENOXAPARIN [Suspect]
     Active Substance: ENOXAPARIN
  11. THYROID [Concomitant]
     Active Substance: LEVOTHYROXINE\LIOTHYRONINE

REACTIONS (2)
  - Anaemia [None]
  - Post procedural haematoma [None]

NARRATIVE: CASE EVENT DATE: 20170731
